FAERS Safety Report 4694085-5 (Version None)
Quarter: 2005Q2

REPORT INFORMATION
  Report Type: 
  Country: None (occurrence: None)
  Receive Date: 20050616
  Receipt Date: 20050607
  Transmission Date: 20051028
  Serious: Yes (Death, Hospitalization, Other)
  Sender: FDA-Public Use
  Company Number: 2004106702

PATIENT
  Age: 35 Year
  Sex: Male
  Weight: 74.3899 kg

DRUGS (13)
  1. NEURONTIN [Suspect]
     Indication: MUSCLE SPASMS
  2. TRAMADOL HCL [Suspect]
     Indication: ILL-DEFINED DISORDER
  3. ETHANOL (ETHANOL) [Suspect]
     Indication: ILL-DEFINED DISORDER
  4. ACETAMINOPHEN [Suspect]
     Indication: ILL-DEFINED DISORDER
  5. CARISOPRODOL [Suspect]
     Indication: ILL-DEFINED DISORDER
     Dates: start: 20000720
  6. MEPROBAMATE [Suspect]
     Indication: ILL-DEFINED DISORDER
  7. HYDROCODONE BITARTRATE [Suspect]
     Indication: ILL-DEFINED DISORDER
     Dates: start: 20000720
  8. OXYCODONE (OXYCODONE) [Suspect]
     Indication: ILL-DEFINED DISORDER
  9. PROMETHAZINE [Suspect]
     Indication: ILL-DEFINED DISORDER
  10. SKELAXIN [Concomitant]
  11. CATAFLAM (DICLOFENAC SODIUM) [Concomitant]
  12. DARVOCET (DEXTROPROPOXYPHENE NAPSILATE, PARACETAMOL) [Concomitant]
  13. VIOXX [Concomitant]

REACTIONS (17)
  - ACTIVITIES OF DAILY LIVING IMPAIRED [None]
  - ATROPHY [None]
  - BACK PAIN [None]
  - COMPLETED SUICIDE [None]
  - DEPRESSION [None]
  - DRUG INEFFECTIVE [None]
  - DRUG TOXICITY [None]
  - INTERVERTEBRAL DISC DISORDER [None]
  - INTERVERTEBRAL DISC PROTRUSION [None]
  - MASS [None]
  - MUSCLE SPASMS [None]
  - NECK PAIN [None]
  - PAIN IN EXTREMITY [None]
  - PULMONARY CONGESTION [None]
  - PULMONARY OEDEMA [None]
  - SPINAL CORD INJURY [None]
  - SPINAL DISORDER [None]
